FAERS Safety Report 7551320-3 (Version None)
Quarter: 2011Q2

REPORT INFORMATION
  Report Type: 
  Country: None (occurrence: None)
  Receive Date: 20110616
  Receipt Date: 20110614
  Transmission Date: 20111010
  Serious: Yes (Other)
  Sender: FDA-Public Use
  Company Number: JP-PFIZER INC-2011129664

PATIENT
  Age: 20 Year

DRUGS (1)
  1. CORTRIL [Suspect]
     Indication: NERVE INJURY
     Dosage: UNK
     Route: 048

REACTIONS (2)
  - HYPOKALAEMIA [None]
  - METABOLIC ACIDOSIS [None]
